FAERS Safety Report 8740255 (Version 2)
Quarter: 2012Q4

REPORT INFORMATION
  Report Type: 
  Country: US (occurrence: US)
  Receive Date: 20120823
  Receipt Date: 20121001
  Transmission Date: 20130627
  Serious: Yes (Hospitalization)
  Sender: FDA-Public Use
  Company Number: US-PFIZER INC-2012202271

PATIENT
  Age: 59 Year
  Sex: Female
  Weight: 134 kg

DRUGS (3)
  1. GLUCOTROL [Suspect]
     Indication: DIABETES MELLITUS
     Dosage: 10 mg, 2x/day
  2. CITALOPRAM [Concomitant]
     Indication: DEPRESSION
     Dosage: 0.5 mg, 2x/day
  3. METFORMIN [Concomitant]
     Indication: DIABETES MELLITUS
     Dosage: 1000 mg, 2x/day

REACTIONS (1)
  - Nephrolithiasis [Unknown]
